FAERS Safety Report 19055788 (Version 1)
Quarter: 2021Q1

REPORT INFORMATION
  Report Type: Spontaneous
  Country: US (occurrence: US)
  Receive Date: 20210324
  Receipt Date: 20210324
  Transmission Date: 20210420
  Serious: No
  Sender: FDA-Public Use
  Company Number: None

PATIENT
  Age: 57 Year
  Sex: Female
  Weight: 66.15 kg

DRUGS (1)
  1. GAMUNEX?C [Suspect]
     Active Substance: HUMAN IMMUNOGLOBULIN G
     Indication: IMMUNOGLOBULINS DECREASED
     Dosage: ?          OTHER FREQUENCY:ONCE A MONTH;?
     Route: 041

REACTIONS (3)
  - Sneezing [None]
  - Rash [None]
  - Headache [None]

NARRATIVE: CASE EVENT DATE: 20210223
